FAERS Safety Report 7301124-1 (Version None)
Quarter: 2011Q1

REPORT INFORMATION
  Report Type: 
  Country: None (occurrence: None)
  Receive Date: 20110218
  Receipt Date: 20110204
  Transmission Date: 20110831
  Serious: Yes (Death, Hospitalization, Other)
  Sender: FDA-Public Use
  Company Number: US-CELGENEUS-163-21880-10111572

PATIENT
  Sex: Female

DRUGS (12)
  1. CLARITIN [Concomitant]
     Route: 065
  2. COMPAZINE [Concomitant]
     Route: 065
  3. PROZAC [Concomitant]
     Route: 065
  4. NEURONTIN [Concomitant]
     Route: 065
  5. TOPROL-XL [Concomitant]
     Route: 065
  6. HYDROCODONE [Concomitant]
     Route: 065
  7. ATIVAN [Concomitant]
     Route: 065
  8. K-DUR [Concomitant]
     Route: 065
  9. REVLIMID [Suspect]
     Indication: MULTIPLE MYELOMA
     Route: 048
     Dates: start: 20100401
  10. REVLIMID [Suspect]
     Route: 048
     Dates: start: 20100601, end: 20100901
  11. ACYCLOVIR [Concomitant]
     Route: 065
  12. AMBIEN [Concomitant]
     Route: 065

REACTIONS (2)
  - BONE MARROW FAILURE [None]
  - MULTIPLE MYELOMA [None]
